FAERS Safety Report 8325276-X (Version None)
Quarter: 2012Q2

REPORT INFORMATION
  Report Type: 
  Country: None (occurrence: None)
  Receive Date: 20120427
  Receipt Date: 20120406
  Transmission Date: 20120825
  Serious: Yes (Other)
  Sender: FDA-Public Use
  Company Number: AG-2012-0004-RU

PATIENT
  Age: 42 Year
  Sex: Female

DRUGS (4)
  1. BUSULFAN [Suspect]
     Indication: PRODUCT USED FOR UNKNOWN INDICATION
  2. CYCLOSPORINE [Concomitant]
  3. FLUDARABINE PHOSPHATE [Suspect]
     Indication: PRODUCT USED FOR UNKNOWN INDICATION
  4. METHOTREXATE [Concomitant]

REACTIONS (5)
  - DRUG INEFFECTIVE [None]
  - DISEASE PROGRESSION [None]
  - GRAFT VERSUS HOST DISEASE IN SKIN [None]
  - MYELODYSPLASTIC SYNDROME [None]
  - STEM CELL TRANSPLANT [None]
